FAERS Safety Report 9915959 (Version 1)
Quarter: 2014Q1

REPORT INFORMATION
  Report Type: Spontaneous
  Country: US (occurrence: None)
  Receive Date: 20140220
  Receipt Date: 20140220
  Transmission Date: 20141002
  Serious: Yes (Hospitalization)
  Sender: FDA-Public Use
  Company Number: None

PATIENT
  Age: 47 Year
  Sex: Male
  Weight: 113.4 kg

DRUGS (5)
  1. CYCLOPHOSPHAMIDE [Suspect]
  2. DOXORUBICIN HYDROCHLORIDE [Concomitant]
  3. ETOPOSIDE (VP-16) [Suspect]
  4. RITUXIMAB [Suspect]
  5. VINCRISTINE SULFATE [Suspect]

REACTIONS (7)
  - Fatigue [None]
  - Hyperhidrosis [None]
  - Chills [None]
  - Febrile neutropenia [None]
  - Infection [None]
  - Pulmonary oedema [None]
  - Productive cough [None]
